FAERS Safety Report 13831668 (Version 1)
Quarter: 2017Q3

REPORT INFORMATION
  Report Type: Report from Study
  Country: AU (occurrence: AU)
  Receive Date: 20170803
  Receipt Date: 20170803
  Transmission Date: 20171127
  Serious: Yes (Other)
  Sender: FDA-Public Use
  Company Number: AU-REGENERON PHARMACEUTICALS, INC.-2017-19629

PATIENT

DRUGS (2)
  1. EYLEA [Suspect]
     Active Substance: AFLIBERCEPT
     Dosage: 9 WEEKLY
     Route: 031
  2. EYLEA [Suspect]
     Active Substance: AFLIBERCEPT
     Indication: NEOVASCULAR AGE-RELATED MACULAR DEGENERATION
     Dosage: FREQUENCY NOT SPECIFIED
     Route: 031
     Dates: start: 20141030

REACTIONS (3)
  - Injection site pain [Recovered/Resolved]
  - Eye haemorrhage [Recovering/Resolving]
  - Visual impairment [Unknown]
